FAERS Safety Report 6661234-9 (Version None)
Quarter: 2010Q1

REPORT INFORMATION
  Report Type: 
  Country: None (occurrence: None)
  Receive Date: 20100331
  Receipt Date: 20100326
  Transmission Date: 20100710
  Serious: Yes (Other)
  Sender: FDA-Public Use
  Company Number: BR-ROCHE-693752

PATIENT
  Sex: Female
  Weight: 70 kg

DRUGS (2)
  1. RIVOTRIL [Suspect]
     Indication: SLEEP DISORDER THERAPY
     Route: 048
     Dates: start: 19990101
  2. CARBIDOPA [Concomitant]
     Dates: start: 20080101

REACTIONS (9)
  - ABDOMINAL PAIN UPPER [None]
  - CEREBROVASCULAR ACCIDENT [None]
  - FALL [None]
  - HYPERTENSION [None]
  - HYPOAESTHESIA [None]
  - JOINT SPRAIN [None]
  - MALAISE [None]
  - MOVEMENT DISORDER [None]
  - PARKINSON'S DISEASE [None]
